FAERS Safety Report 6065701-0 (Version None)
Quarter: 2009Q1

REPORT INFORMATION
  Report Type: 
  Country: None (occurrence: None)
  Receive Date: 20090130
  Receipt Date: 20090115
  Transmission Date: 20090719
  Serious: Yes (Life-Threatening)
  Sender: FDA-Public Use
  Company Number: FR-2009-0092

PATIENT
  Age: 61 Year
  Sex: Female
  Weight: 66 kg

DRUGS (2)
  1. NAVELBINE [Suspect]
     Indication: BREAST CANCER
     Dosage: 50 MG IV
     Route: 042
     Dates: start: 20081001, end: 20081001
  2. HERCEPTIN [Suspect]
     Indication: BREAST CANCER
     Dosage: 130 MG IV
     Route: 042
     Dates: start: 20081001, end: 20081001

REACTIONS (4)
  - CHEST PAIN [None]
  - HYPERTENSION [None]
  - HYPOTENSION [None]
  - PALPITATIONS [None]
